FAERS Safety Report 9337666 (Version 2)
Quarter: 2013Q3

REPORT INFORMATION
  Report Type: Spontaneous
  Country: US (occurrence: US)
  Receive Date: 20130607
  Receipt Date: 20130711
  Transmission Date: 20140515
  Serious: Yes (Hospitalization, Other)
  Sender: FDA-Public Use
  Company Number: US-TARO-2013P1006683

PATIENT
  Age: 68 Year
  Sex: Male
  Weight: 75.75 kg

DRUGS (17)
  1. WARFARIN SODIUM TABLETS USP 5MG [Suspect]
     Route: 048
     Dates: start: 2006
  2. WARFARIN SODIUM TABLETS USP 5MG [Suspect]
     Route: 048
     Dates: end: 20130415
  3. WARFARIN SODIUM TABLETS USP 5MG [Suspect]
     Route: 048
     Dates: start: 20130419, end: 20130514
  4. WARFARIN SODIUM TABLETS USP 5MG [Suspect]
     Route: 048
     Dates: start: 20130517
  5. HYDRALAZINE [Concomitant]
  6. ISOSORBIDE DINITRATE [Concomitant]
  7. MINOXIDIL [Concomitant]
  8. FUROSEMIDE [Concomitant]
  9. DEXILANT DR [Concomitant]
  10. SIMVASTATIN [Concomitant]
  11. ASPIRIN [Concomitant]
  12. FOLIC ACID [Concomitant]
  13. AVODART [Concomitant]
  14. DORZOLAMIDE/TIMOLOL [Concomitant]
     Dates: start: 20130521
  15. LUMIGAN [Concomitant]
  16. SUSTAINED LUBRICATING GEL [Concomitant]
  17. ZADITOR [Concomitant]

REACTIONS (12)
  - Angle closure glaucoma [Not Recovered/Not Resolved]
  - Cataract operation [Recovered/Resolved]
  - Intraocular lens implant [Recovered/Resolved]
  - Stent placement [Recovered/Resolved]
  - Deep vein thrombosis [Unknown]
  - Eczema [Recovering/Resolving]
  - International normalised ratio fluctuation [Unknown]
  - Hyperlipidaemia [Not Recovered/Not Resolved]
  - Chronic obstructive pulmonary disease [Not Recovered/Not Resolved]
  - Pneumothorax [Unknown]
  - Chest pain [Recovered/Resolved]
  - Diverticulum [Unknown]
